FAERS Safety Report 18999772 (Version 1)
Quarter: 2021Q1

REPORT INFORMATION
  Report Type: Spontaneous
  Country: US (occurrence: US)
  Receive Date: 20210312
  Receipt Date: 20210312
  Transmission Date: 20210420
  Serious: Yes (Death)
  Sender: FDA-Public Use
  Company Number: US-JNJFOC-20191005804

PATIENT
  Age: 24 Year
  Sex: Male

DRUGS (1)
  1. IMODIUM [Suspect]
     Active Substance: LOPERAMIDE HYDROCHLORIDE
     Indication: PRODUCT USED FOR UNKNOWN INDICATION
     Route: 048

REACTIONS (6)
  - Brain oedema [Fatal]
  - Cardiomegaly [Fatal]
  - Venous thrombosis limb [Fatal]
  - Pulmonary oedema [Fatal]
  - Drug abuse [Fatal]
  - Urinary retention [Fatal]
